FAERS Safety Report 7862752-8 (Version None)
Quarter: 2011Q4

REPORT INFORMATION
  Report Type: 
  Country: None (occurrence: None)
  Receive Date: 20111027
  Receipt Date: 20101112
  Transmission Date: 20120403
  Serious: No
  Sender: FDA-Public Use
  Company Number: US-AMGEN-USASP2010005124

PATIENT
  Age: 65 Year
  Sex: Female

DRUGS (1)
  1. ENBREL [Suspect]
     Indication: PUSTULAR PSORIASIS
     Dosage: 50 MG, 2 TIMES/WK
     Dates: start: 20100101, end: 20101011

REACTIONS (4)
  - INCREASED UPPER AIRWAY SECRETION [None]
  - INCREASED BRONCHIAL SECRETION [None]
  - PUSTULAR PSORIASIS [None]
  - COUGH [None]
